FAERS Safety Report 14157734 (Version 2)
Quarter: 2018Q1

REPORT INFORMATION
  Report Type: Spontaneous
  Country: US (occurrence: US)
  Receive Date: 20171103
  Receipt Date: 20180110
  Transmission Date: 20180508
  Serious: Yes (Death)
  Sender: FDA-Public Use
  Company Number: US-SAOL THERAPEUTICS-2017SAO01699

PATIENT
  Sex: Male

DRUGS (10)
  1. MORPHINE SULFATE. [Suspect]
     Active Substance: MORPHINE SULFATE
     Dosage: 14.401 MG, \DAY MAX
     Route: 037
  2. BACLOFEN. [Suspect]
     Active Substance: BACLOFEN
     Dosage: 108.00 ?G, \DAY MAX
     Route: 037
  3. CLONIDINE. [Suspect]
     Active Substance: CLONIDINE
     Dosage: 27.222 ?G, \DAY
     Route: 037
  4. CLONIDINE. [Suspect]
     Active Substance: CLONIDINE
     Dosage: 36.001 ?G, \DAY MAX
     Route: 037
  5. HYDROMORPHINE [Suspect]
     Active Substance: HYDROMORPHONE
     Dosage: 10.889 MG, \DAY
     Route: 037
  6. HYDROMORPHINE [Suspect]
     Active Substance: HYDROMORPHONE
     Dosage: 14.401 MG, \DAY MAX
     Route: 037
  7. BUPIVACAINE. [Suspect]
     Active Substance: BUPIVACAINE
     Dosage: 7.200 MG, \DAY MAX
     Route: 037
  8. BUPIVACAINE. [Suspect]
     Active Substance: BUPIVACAINE
     Dosage: 5.444 MG, \DAY
     Route: 037
  9. MORPHINE SULFATE. [Suspect]
     Active Substance: MORPHINE SULFATE
     Dosage: 10.889 MG, \DAY
     Route: 037
  10. BACLOFEN. [Suspect]
     Active Substance: BACLOFEN
     Dosage: 81.67 ?G, \DAY
     Route: 037

REACTIONS (1)
  - Road traffic accident [Fatal]
